FAERS Safety Report 7330664-4 (Version None)
Quarter: 2011Q1

REPORT INFORMATION
  Report Type: 
  Country: None (occurrence: None)
  Receive Date: 20110304
  Receipt Date: 20110224
  Transmission Date: 20110831
  Serious: Yes (Other)
  Sender: FDA-Public Use
  Company Number: NL-AMGEN-NLDCT2011011797

PATIENT
  Age: 56 Year
  Sex: Male
  Weight: 96.4 kg

DRUGS (7)
  1. DOVOBET                            /01643201/ [Concomitant]
     Indication: PSORIASIS
     Dosage: UNK
     Route: 061
  2. ETANERCEPT [Suspect]
     Indication: PSORIASIS
     Dosage: 25 MG, 2 TIMES/WK
     Dates: start: 20020822, end: 20030627
  3. ETANERCEPT [Suspect]
     Dosage: 50 MG, 2 TIMES/WK
     Dates: start: 20090122, end: 20090903
  4. ETANERCEPT [Suspect]
     Dosage: 50 MG, 2 TIMES/WK
     Dates: start: 20030916, end: 20031209
  5. ETANERCEPT [Suspect]
     Dosage: 25 MG, 2 TIMES/WK
     Dates: start: 20031209, end: 20040817
  6. ETANERCEPT [Suspect]
     Dosage: 50 MG, QWK
     Dates: start: 20100515, end: 20110119
  7. ETANERCEPT [Suspect]
     Dosage: 25 MG, 2 TIMES/WK
     Dates: start: 20090903, end: 20100515

REACTIONS (1)
  - SQUAMOUS CELL CARCINOMA [None]
